FAERS Safety Report 19614376 (Version 1)
Quarter: 2021Q3

REPORT INFORMATION
  Report Type: Spontaneous
  Country: US (occurrence: US)
  Receive Date: 20210727
  Receipt Date: 20210727
  Transmission Date: 20211014
  Serious: Yes (Other)
  Sender: FDA-Public Use
  Company Number: US-APOTEX-2021AP020612

PATIENT
  Age: 63 Year
  Sex: Male

DRUGS (4)
  1. NEVIRAPINE. [Concomitant]
     Active Substance: NEVIRAPINE
     Indication: ANTIVIRAL TREATMENT
     Dosage: UNK
     Route: 065
  2. EMTRICITABINE;TENOFOVIR ALAFENAMIDE [Concomitant]
     Active Substance: EMTRICITABINE\TENOFOVIR
     Indication: ANTIVIRAL TREATMENT
     Dosage: UNK
     Route: 065
  3. AZELASTINE. [Concomitant]
     Active Substance: AZELASTINE HYDROCHLORIDE
     Indication: RHINITIS ALLERGIC
     Dosage: UNK
     Route: 065
  4. FLUTICASONE PROPIONATE NASAL SPRAY [Suspect]
     Active Substance: FLUTICASONE PROPIONATE
     Indication: RHINITIS ALLERGIC
     Dosage: 50 MICROGRAM, PER SPRAY 1?2 PUFFS ONCE TO TWICE DAILY
     Route: 045
     Dates: start: 2015, end: 2020

REACTIONS (2)
  - Kaposi^s sarcoma [Recovered/Resolved]
  - Nasal neoplasm [Recovered/Resolved]

NARRATIVE: CASE EVENT DATE: 2020
